FAERS Safety Report 9321313 (Version 1)
Quarter: 2013Q2

REPORT INFORMATION
  Report Type: Spontaneous
  Country: ES (occurrence: None)
  Receive Date: 20130528
  Receipt Date: 20130528
  Transmission Date: 20140414
  Serious: Yes (Other)
  Sender: FDA-Public Use
  Company Number: 2013P1006192

PATIENT
  Sex: 0

DRUGS (1)
  1. REVEX [Suspect]
     Dosage: 1 TABLET; PRN;
     Route: 048

REACTIONS (1)
  - Intentional overdose [None]
